FAERS Safety Report 16208037 (Version 3)
Quarter: 2019Q3

REPORT INFORMATION
  Report Type: Spontaneous
  Country: JP (occurrence: JP)
  Receive Date: 20190417
  Receipt Date: 20190706
  Transmission Date: 20191004
  Serious: Yes (Hospitalization, Other)
  Sender: FDA-Public Use
  Company Number: JP-AMGEN-JPNSP2019060938

PATIENT
  Age: 9 Decade
  Sex: Male

DRUGS (1)
  1. G-LASTA [Suspect]
     Active Substance: PEGFILGRASTIM
     Indication: COLONY STIMULATING FACTOR THERAPY
     Dosage: UNK
     Route: 058

REACTIONS (3)
  - White blood cell count decreased [Unknown]
  - Pyrexia [Unknown]
  - Pneumonia [Recovered/Resolved]
